FAERS Safety Report 9340713 (Version 2)
Quarter: 2013Q3

REPORT INFORMATION
  Report Type: Spontaneous
  Country: IN (occurrence: IN)
  Receive Date: 20130610
  Receipt Date: 20130701
  Transmission Date: 20140515
  Serious: Yes (Life-Threatening, Hospitalization, Other)
  Sender: FDA-Public Use
  Company Number: IN-GLAXOSMITHKLINE-B0897646A

PATIENT
  Age: 69 Year
  Sex: Female

DRUGS (1)
  1. VOTRIENT [Suspect]
     Indication: LEIOMYOSARCOMA
     Dosage: 800MG PER DAY
     Route: 065
     Dates: start: 20130516, end: 20130528

REACTIONS (16)
  - Cardiac failure acute [Recovered/Resolved]
  - Ventricular hypokinesia [Unknown]
  - Mitral valve incompetence [Unknown]
  - Pericardial effusion [Unknown]
  - Dyspnoea [Unknown]
  - Chest pain [Unknown]
  - Pyrexia [Recovering/Resolving]
  - Orthopnoea [Unknown]
  - Left ventricular dysfunction [Unknown]
  - Cholelithiasis [Unknown]
  - Hepatomegaly [Unknown]
  - Dilatation ventricular [Unknown]
  - Left atrial dilatation [Unknown]
  - Systolic dysfunction [Unknown]
  - Aortic valve incompetence [Unknown]
  - Tricuspid valve incompetence [Unknown]
